FAERS Safety Report 4575139-0 (Version None)
Quarter: 2005Q1

REPORT INFORMATION
  Report Type: 
  Country: None (occurrence: None)
  Receive Date: 20050208
  Receipt Date: 20050114
  Transmission Date: 20050727
  Serious: Yes (Other)
  Sender: FDA-Public Use
  Company Number: US-MERCK-0501USA02679

PATIENT
  Age: 46 Year
  Sex: Male

DRUGS (3)
  1. VIOXX [Suspect]
     Route: 048
     Dates: start: 20020101
  2. NORVASC [Concomitant]
     Route: 048
  3. CELEBREX [Concomitant]
     Route: 048

REACTIONS (14)
  - ARTHRITIS [None]
  - CEREBROVASCULAR ACCIDENT [None]
  - CONSTIPATION [None]
  - DEPRESSION [None]
  - DIARRHOEA [None]
  - EATING DISORDER [None]
  - GASTRIC DISORDER [None]
  - GASTROOESOPHAGEAL REFLUX DISEASE [None]
  - HALITOSIS [None]
  - HIATUS HERNIA [None]
  - HYPERTENSION [None]
  - IRRITABLE BOWEL SYNDROME [None]
  - OESOPHAGEAL STENOSIS [None]
  - WEIGHT INCREASED [None]
